FAERS Safety Report 4413239-6 (Version None)
Quarter: 2004Q3

REPORT INFORMATION
  Report Type: 
  Country: None (occurrence: None)
  Receive Date: 20040728
  Receipt Date: 20040715
  Transmission Date: 20050211
  Serious: Yes (Disabling)
  Sender: FDA-Public Use
  Company Number: 2004042305

PATIENT
  Age: 54 Year
  Sex: Female

DRUGS (2)
  1. GEODON [Suspect]
     Indication: DEPRESSION
     Dosage: 1 IN 1 D , ORAL
     Route: 048
     Dates: start: 20020401
  2. VENLAFAXINE HCL [Suspect]
     Indication: DEPRESSION
     Dosage: 375 MG (375MG, 1 IN 1 D), ORAL
     Route: 048
     Dates: start: 20000301

REACTIONS (1)
  - TARDIVE DYSKINESIA [None]
